FAERS Safety Report 9853706 (Version 1)
Quarter: 2014Q1

REPORT INFORMATION
  Report Type: Spontaneous
  Country: US (occurrence: US)
  Receive Date: 20140129
  Receipt Date: 20140129
  Transmission Date: 20141002
  Serious: No
  Sender: FDA-Public Use
  Company Number: US-GLAXOSMITHKLINE-A1008055A

PATIENT
  Age: 66 Year
  Sex: Female
  Weight: 97.7 kg

DRUGS (4)
  1. WELLBUTRIN [Suspect]
     Indication: PRODUCT USED FOR UNKNOWN INDICATION
     Route: 065
  2. ZYBAN [Suspect]
     Indication: PRODUCT USED FOR UNKNOWN INDICATION
     Route: 065
  3. DILTIAZEM [Concomitant]
     Indication: HYPERTENSION
     Dosage: 80MG PER DAY
  4. LEVOTHYROXIN [Concomitant]
     Indication: THYROID DISORDER
     Dosage: 200MG PER DAY

REACTIONS (2)
  - Abnormal behaviour [Unknown]
  - Adverse event [Unknown]
